FAERS Safety Report 12328696 (Version 1)
Quarter: 2016Q2

REPORT INFORMATION
  Report Type: Spontaneous
  Country: US (occurrence: US)
  Receive Date: 20160503
  Receipt Date: 20160503
  Transmission Date: 20160815
  Serious: No
  Sender: FDA-Public Use
  Company Number: US-BEH-2015050214

PATIENT
  Sex: Male
  Weight: 23 kg

DRUGS (7)
  1. LIDOCAINE/PRILOCAINE [Concomitant]
  2. HIZENTRA [Suspect]
     Active Substance: HUMAN IMMUNOGLOBULIN G
     Indication: CONGENITAL HYPOGAMMAGLOBULINAEMIA
     Route: 058
  3. ALBUTEROL. [Concomitant]
     Active Substance: ALBUTEROL
  4. CHILD^S BENADRYL [Concomitant]
  5. GUMMIES CHILDREN MULTIVITAMIN [Concomitant]
  6. HIZENTRA CREAM [Concomitant]
  7. EPIPEN JR. AUTOINJECTOR [Concomitant]

REACTIONS (2)
  - Contusion [Unknown]
  - Ear infection [Unknown]
